FAERS Safety Report 6997296-9 (Version None)
Quarter: 2010Q3

REPORT INFORMATION
  Report Type: 
  Country: None (occurrence: None)
  Receive Date: 20100918
  Receipt Date: 20090929
  Transmission Date: 20110219
  Serious: No
  Sender: FDA-Public Use
  Company Number: US-WYE-H11298309

PATIENT
  Sex: Female
  Weight: 76.27 kg

DRUGS (6)
  1. PRISTIQ [Suspect]
     Indication: MAJOR DEPRESSION
     Route: 048
     Dates: start: 20090926
  2. ANAFRANIL [Concomitant]
  3. ATIVAN [Concomitant]
  4. LITHIUM CARBONATE [Concomitant]
  5. ABILIFY [Concomitant]
  6. TRIAZOLAM [Concomitant]

REACTIONS (2)
  - CONDITION AGGRAVATED [None]
  - INSOMNIA [None]
